FAERS Safety Report 7051257-2 (Version None)
Quarter: 2010Q4

REPORT INFORMATION
  Report Type: 
  Country: None (occurrence: None)
  Receive Date: 20101018
  Receipt Date: 20101018
  Transmission Date: 20110411
  Serious: Yes (Disabling)
  Sender: FDA-Public Use
  Company Number: None

PATIENT
  Sex: Female
  Weight: 55.3388 kg

DRUGS (2)
  1. BACLOFEN [Suspect]
     Indication: ARTHRALGIA
     Dosage: 2X DAILY
     Dates: start: 20100101
  2. BACLOFEN [Suspect]
     Indication: SWELLING
     Dosage: 2X DAILY
     Dates: start: 20100101

REACTIONS (1)
  - DEAFNESS [None]
